FAERS Safety Report 5600111-9 (Version None)
Quarter: 2008Q1

REPORT INFORMATION
  Report Type: 
  Country: None (occurrence: None)
  Receive Date: 20080123
  Receipt Date: 20080121
  Transmission Date: 20080703
  Serious: Yes (Life-Threatening, Hospitalization)
  Sender: FDA-Public Use
  Company Number: B0485088A

PATIENT
  Age: 49 Year
  Sex: Male

DRUGS (18)
  1. EPZICOM [Suspect]
     Indication: ACQUIRED IMMUNODEFICIENCY SYNDROME
     Route: 048
     Dates: start: 20061212, end: 20070319
  2. COMBIVIR [Suspect]
     Indication: ACQUIRED IMMUNODEFICIENCY SYNDROME
     Route: 048
     Dates: start: 20061114, end: 20061211
  3. KALETRA [Suspect]
     Indication: ACQUIRED IMMUNODEFICIENCY SYNDROME
     Route: 048
     Dates: start: 20061114, end: 20070223
  4. REYATAZ [Suspect]
     Indication: ACQUIRED IMMUNODEFICIENCY SYNDROME
     Route: 048
     Dates: start: 20070224, end: 20070319
  5. VALGANCICLOVIR HCL [Suspect]
     Indication: ENCEPHALITIS CYTOMEGALOVIRUS
     Route: 048
     Dates: start: 20061123
  6. FOSCAVIR [Suspect]
     Indication: ENCEPHALITIS CYTOMEGALOVIRUS
     Route: 042
     Dates: start: 20061123, end: 20070201
  7. ZITHROMAX [Suspect]
     Indication: MYCOBACTERIUM AVIUM COMPLEX INFECTION
     Route: 048
     Dates: start: 20061106
  8. BAKTAR [Concomitant]
     Indication: ANTIFUNGAL PROPHYLAXIS
     Route: 048
     Dates: start: 20061106, end: 20061122
  9. DIFLUCAN [Concomitant]
     Dosage: 100MG AS DIRECTED
     Route: 065
     Dates: start: 20061108, end: 20070127
  10. ROCEPHIN [Concomitant]
     Indication: SYPHILIS
     Route: 042
     Dates: start: 20061025, end: 20061123
  11. GASTER D [Concomitant]
     Dosage: 10MG PER DAY
     Route: 048
     Dates: start: 20061116, end: 20070306
  12. UNKNOWN DRUG [Concomitant]
     Indication: ANTIFUNGAL PROPHYLAXIS
     Dosage: 750MG TWICE PER DAY
     Route: 065
     Dates: start: 20061122
  13. FUNGIZONE [Concomitant]
     Indication: INFECTION PROPHYLAXIS
     Route: 002
     Dates: start: 20061103, end: 20070210
  14. DIFLUCAN [Concomitant]
     Dosage: 100MG PER DAY
     Route: 065
     Dates: start: 20070121, end: 20070127
  15. GASTER [Concomitant]
     Dosage: 20MG PER DAY
     Route: 042
     Dates: start: 20070307
  16. ALBUMIN (HUMAN) [Concomitant]
     Dosage: 100ML PER DAY
     Route: 042
     Dates: start: 20070312, end: 20070314
  17. FUROSEMIDE [Concomitant]
     Dosage: 20MG PER DAY
     Route: 042
     Dates: start: 20070312
  18. MUCOSTA [Concomitant]
     Dosage: 100MG THREE TIMES PER DAY
     Route: 042
     Dates: start: 20070116, end: 20070228

REACTIONS (19)
  - ACUTE RESPIRATORY FAILURE [None]
  - BONE MARROW FAILURE [None]
  - C-REACTIVE PROTEIN INCREASED [None]
  - CEREBRAL TOXOPLASMOSIS [None]
  - DISSEMINATED INTRAVASCULAR COAGULATION [None]
  - EATING DISORDER [None]
  - ENCEPHALITIS [None]
  - HAEMOGLOBIN DECREASED [None]
  - HYPERTHERMIA [None]
  - LOSS OF CONSCIOUSNESS [None]
  - MENINGISM [None]
  - MUSCULOSKELETAL STIFFNESS [None]
  - PANCYTOPENIA [None]
  - PNEUMOTHORAX [None]
  - RESPIRATORY ARREST [None]
  - SHOCK [None]
  - STAPHYLOCOCCAL INFECTION [None]
  - STAPHYLOCOCCAL SEPSIS [None]
  - STREPTOCOCCAL INFECTION [None]
